FAERS Safety Report 8571039-X (Version None)
Quarter: 2012Q3

REPORT INFORMATION
  Report Type: 
  Country: None (occurrence: None)
  Receive Date: 20120730
  Receipt Date: 20120730
  Transmission Date: 20120928
  Serious: No
  Sender: FDA-Public Use
  Company Number: None

PATIENT
  Age: 57 Year
  Sex: Female
  Weight: 58.514 kg

DRUGS (1)
  1. VENLAFAXINE [Suspect]
     Indication: DEPRESSION
     Dosage: ONE TABLET TWICE DAILY PO
     Route: 048
     Dates: start: 20120721, end: 20120728

REACTIONS (2)
  - FATIGUE [None]
  - DISTURBANCE IN ATTENTION [None]
